FAERS Safety Report 17820636 (Version 5)
Quarter: 2024Q1

REPORT INFORMATION
  Report Type: Spontaneous
  Country: US (occurrence: US)
  Receive Date: 20200525
  Receipt Date: 20240222
  Transmission Date: 20240410
  Serious: Yes (Hospitalization, Other)
  Sender: FDA-Public Use
  Company Number: US-PFIZER INC-2020204617

PATIENT
  Age: 75 Year
  Sex: Female
  Weight: 71.21 kg

DRUGS (1)
  1. IBRANCE [Suspect]
     Active Substance: PALBOCICLIB
     Dosage: 75 MG, CYCLIC (TAKE 1 TABLET (75MG TOTAL) BY MOUTH DAILY FOR 21 DAYS, THEN 7 DAYS OFF)
     Route: 048

REACTIONS (5)
  - Illness [Unknown]
  - Product use complaint [Unknown]
  - Choking [Not Recovered/Not Resolved]
  - Retching [Unknown]
  - Vomiting [Not Recovered/Not Resolved]

NARRATIVE: CASE EVENT DATE: 20200521
